FAERS Safety Report 8634049 (Version 3)
Quarter: 2013Q3

REPORT INFORMATION
  Report Type: Spontaneous
  Country: US (occurrence: None)
  Receive Date: 20120613
  Receipt Date: 20130821
  Transmission Date: 20140515
  Serious: Yes (Other)
  Sender: FDA-Public Use
  Company Number: AUR-APL-2012-02527

PATIENT
  Age: 54 Year
  Sex: Female
  Weight: 86.17 kg

DRUGS (10)
  1. METOPROLOL TARTRATE [Suspect]
     Indication: DIURETIC THERAPY
     Dosage: (50 MG, 1 D), UNKNOWN
  2. HYDROCHLOROTHIAZIDE (HYDROCHLOROTHIAZIDE) [Suspect]
     Indication: DIURETIC THERAPY
     Dosage: (50 MG, 1 D)
  3. LYRICA [Suspect]
     Indication: RESTLESS LEGS SYNDROME
     Dosage: (150 MG, 1 D), ORAL
     Route: 048
  4. LYRICA [Suspect]
     Indication: NEUROPATHY PERIPHERAL
     Dosage: (150 MG, 1 D), ORAL
     Route: 048
  5. ZOLOFT [Suspect]
     Indication: PRODUCT USED FOR UNKNOWN INDICATION
  6. PROTONIX [Suspect]
     Indication: PRODUCT USED FOR UNKNOWN INDICATION
     Dosage: UNKNOWN
  7. SERTRALINE HYDROCHLORIDE [Concomitant]
  8. XYZAL [Concomitant]
  9. ALEVE [Concomitant]
  10. PANTOPRAZOLE SODIUM [Concomitant]

REACTIONS (12)
  - Feeling abnormal [None]
  - Insomnia [None]
  - Muscle twitching [None]
  - Atrophy [None]
  - Oedema peripheral [None]
  - Pain [None]
  - Condition aggravated [None]
  - Drug ineffective [None]
  - Urticaria [None]
  - Asthenia [None]
  - Muscle atrophy [None]
  - Urticaria [None]
